FAERS Safety Report 10383432 (Version 3)
Quarter: 2016Q2

REPORT INFORMATION
  Report Type: Spontaneous
  Country: US (occurrence: US)
  Receive Date: 20140814
  Receipt Date: 20160601
  Transmission Date: 20160815
  Serious: Yes (Hospitalization, Other)
  Sender: FDA-Public Use
  Company Number: US-JNJCP-30000235213

PATIENT
  Age: 38 Year
  Sex: Female
  Weight: 137 kg

DRUGS (2)
  1. JOHNSONS BABY POWDER [Suspect]
     Active Substance: TALC
     Route: 061
     Dates: start: 1974, end: 2012
  2. SHOWER TO SHOWER TALCUM PRODUCT [Suspect]
     Active Substance: TALC
     Route: 061
     Dates: start: 1974, end: 2012

REACTIONS (1)
  - Ovarian cancer stage IV [Unknown]

NARRATIVE: CASE EVENT DATE: 20121224
